FAERS Safety Report 18227714 (Version 1)
Quarter: 2020Q3

REPORT INFORMATION
  Report Type: Spontaneous
  Country: US (occurrence: US)
  Receive Date: 20200831
  Receipt Date: 20200831
  Transmission Date: 20201103
  Serious: Yes (Hospitalization)
  Sender: FDA-Public Use
  Company Number: None

PATIENT
  Age: 15 Year
  Sex: Male

DRUGS (2)
  1. MARIJUANA VAPING PRODUCT [Suspect]
     Active Substance: CANNABIS SATIVA SUBSP. INDICA TOP\DEVICE
     Dates: start: 20190716, end: 20200206
  2. NICOTINE VAPING [Suspect]
     Active Substance: DEVICE\NICOTINE

REACTIONS (3)
  - Drug screen positive [None]
  - Generalised tonic-clonic seizure [None]
  - Substance use [None]

NARRATIVE: CASE EVENT DATE: 20200716
